FAERS Safety Report 5961554-7 (Version None)
Quarter: 2008Q4

REPORT INFORMATION
  Report Type: 
  Country: None (occurrence: None)
  Receive Date: 20081121
  Receipt Date: 20081114
  Transmission Date: 20090506
  Serious: Yes (Death, Hospitalization)
  Sender: FDA-Public Use
  Company Number: B0534903A

PATIENT
  Age: 51 Year
  Sex: Male

DRUGS (3)
  1. RETROVIR [Suspect]
     Indication: HIV INFECTION
     Route: 048
     Dates: start: 19980101, end: 20051201
  2. EPIVIR [Suspect]
     Indication: HIV INFECTION
     Dosage: 300MG TWICE PER DAY
     Route: 048
     Dates: start: 19980101, end: 20051201
  3. INDINAVIR SULFATE ETHANOLATE [Suspect]
     Indication: HIV INFECTION
     Dosage: 800MG THREE TIMES PER DAY
     Route: 048
     Dates: start: 19980101, end: 20051201

REACTIONS (8)
  - ANAL ABSCESS [None]
  - ANAL INFECTION [None]
  - BONE MARROW FAILURE [None]
  - LEUKAEMIA [None]
  - MYELODYSPLASTIC SYNDROME [None]
  - PANCYTOPENIA [None]
  - REFRACTORY ANAEMIA WITH AN EXCESS OF BLASTS [None]
  - SEPSIS [None]
